FAERS Safety Report 20361896 (Version 1)
Quarter: 2022Q1

REPORT INFORMATION
  Report Type: Report from Study
  Country: FR (occurrence: FR)
  Receive Date: 20220121
  Receipt Date: 20220121
  Transmission Date: 20220424
  Serious: Yes (Hospitalization)
  Sender: FDA-Public Use
  Company Number: FR-SERVIER-S21001530

PATIENT

DRUGS (8)
  1. PEGASPARGASE [Suspect]
     Active Substance: PEGASPARGASE
     Indication: Acute lymphocytic leukaemia
     Dosage: 1650 IU, QD ON D12, D26
     Route: 042
     Dates: start: 20201221, end: 20210105
  2. VINCRISTINE [Suspect]
     Active Substance: VINCRISTINE
     Indication: Acute lymphocytic leukaemia
     Dosage: 2 MG, ON D8, D15, D22, D29
     Route: 042
     Dates: start: 20201217, end: 20210108
  3. DAUNORUBICIN [Suspect]
     Active Substance: DAUNORUBICIN
     Indication: Acute lymphocytic leukaemia
     Dosage: 39 MG, ON D8, D15, D22, D29
     Route: 065
     Dates: start: 20201217, end: 20210108
  4. PREDNISOLONE [Suspect]
     Active Substance: PREDNISOLONE
     Indication: Acute lymphocytic leukaemia
     Dosage: 80 MG, ON D1 TO D29
     Route: 048
     Dates: start: 20201211, end: 20210106
  5. AMPHOTERICIN B [Suspect]
     Active Substance: AMPHOTERICIN B
     Indication: Infection
     Dosage: UNK
     Route: 065
  6. TN UNSPECIFIED [Concomitant]
     Indication: Acute lymphocytic leukaemia
     Dosage: 15 MG, ON D9, D13, D18, D24
     Route: 037
     Dates: start: 20201218, end: 20210105
  7. TN UNSPECIFIED [Concomitant]
     Indication: Acute lymphocytic leukaemia
     Dosage: 15 MG, ON D1, D8, D12, D18 AND D24
     Route: 037
     Dates: start: 20201211, end: 20210105
  8. TN UNSPECIFIED [Concomitant]
     Indication: Acute lymphocytic leukaemia
     Dosage: 30 MG, ON D9, D13, D18, D24
     Route: 037
     Dates: start: 20201218, end: 20210105

REACTIONS (7)
  - Renal colic [Recovered/Resolved]
  - Hypokalaemia [Recovered/Resolved]
  - Bacterial sepsis [Recovered/Resolved]
  - Respiratory moniliasis [Recovering/Resolving]
  - Hepatic candidiasis [Recovering/Resolving]
  - Skin candida [Recovering/Resolving]
  - Weight decreased [Recovering/Resolving]

NARRATIVE: CASE EVENT DATE: 20210104
